FAERS Safety Report 9262585 (Version 2)
Quarter: 2013Q2

REPORT INFORMATION
  Report Type: Spontaneous
  Country: US (occurrence: US)
  Receive Date: 20130430
  Receipt Date: 20130509
  Transmission Date: 20140414
  Serious: Yes (Other)
  Sender: FDA-Public Use
  Company Number: US-ROCHE-1218135

PATIENT
  Age: 57 Year
  Sex: Female

DRUGS (4)
  1. BEVACIZUMAB [Suspect]
     Indication: GLIOBLASTOMA MULTIFORME
     Dosage: EVERY 14 DAYS
     Route: 065
  2. TEMOZOLOMIDE [Concomitant]
     Indication: GLIOBLASTOMA MULTIFORME
     Dosage: ADJUVANT CONCURRENT THERAPY
     Route: 065
  3. TEMOZOLOMIDE [Concomitant]
     Dosage: MAINTENANCE TEMOZOLOMIDE FOR A TOTAL OF NINETEEN 28 DAY CYCLES
     Route: 065
  4. TEMOZOLOMIDE [Concomitant]
     Dosage: RETREATED
     Route: 065

REACTIONS (1)
  - Superior vena cava syndrome [Recovering/Resolving]
